FAERS Safety Report 4310718-7 (Version None)
Quarter: 2004Q1

REPORT INFORMATION
  Report Type: 
  Country: None (occurrence: None)
  Receive Date: 20040302
  Receipt Date: 20040217
  Transmission Date: 20041129
  Serious: Yes (Death)
  Sender: FDA-Public Use
  Company Number: FABR-10478

PATIENT
  Age: 47 Year
  Sex: Male
  Weight: 75 kg

DRUGS (17)
  1. FABRAZYME [Suspect]
     Indication: FABRY'S DISEASE
     Dosage: 70 MG Q2WKS, IV
     Route: 042
     Dates: start: 20020618, end: 20040210
  2. PERINDOPRIL [Concomitant]
  3. ASPIRIN [Concomitant]
  4. CALTRATE [Concomitant]
  5. ALUTAB [Concomitant]
  6. VITAMIN B COMPLEX CAP [Concomitant]
  7. MEGAFOL [Concomitant]
  8. VITAMIN E [Concomitant]
  9. CALCITRIOL [Concomitant]
  10. PYRIDOXINE HYDROCHLORIDE [Concomitant]
  11. ATORVASTATIN CALCIUM [Concomitant]
  12. ACETAMINOPHEN [Concomitant]
  13. CLONAZEPAM [Concomitant]
  14. ANGININE [Concomitant]
  15. PLAVIX [Concomitant]
  16. NITRGLYCERIN TRANSDERMAL SYSTEM [Concomitant]
  17. FERRUM H [Concomitant]

REACTIONS (3)
  - BRADYCARDIA [None]
  - CARDIAC ARREST [None]
  - CIRCULATORY COLLAPSE [None]
